FAERS Safety Report 7249469-8 (Version None)
Quarter: 2011Q1

REPORT INFORMATION
  Report Type: 
  Country: None (occurrence: None)
  Receive Date: 20110128
  Receipt Date: 20101201
  Transmission Date: 20110831
  Serious: Yes (Hospitalization)
  Sender: FDA-Public Use
  Company Number: US-BAYER-201028994NA

PATIENT
  Sex: Female
  Weight: 56.236 kg

DRUGS (5)
  1. YASMIN [Suspect]
     Indication: CONTRACEPTION
     Route: 048
     Dates: start: 20090201, end: 20090701
  2. ZYRTEC [Concomitant]
  3. OCELLA [Suspect]
     Indication: ACNE
     Route: 048
     Dates: start: 20090101, end: 20090201
  4. YASMIN [Suspect]
     Indication: ACNE
     Dosage: UNK UNK, UNK
     Route: 048
     Dates: start: 20060601, end: 20090701
  5. OCELLA [Suspect]
     Indication: CONTRACEPTION

REACTIONS (3)
  - ANXIETY [None]
  - CEREBROVASCULAR ACCIDENT [None]
  - DEPRESSION [None]
